FAERS Safety Report 5505523-X (Version None)
Quarter: 2007Q4

REPORT INFORMATION
  Report Type: 
  Country: None (occurrence: None)
  Receive Date: 20071102
  Receipt Date: 20071030
  Transmission Date: 20080405
  Serious: Yes (Hospitalization)
  Sender: FDA-Public Use
  Company Number: US-SHR-US-2007-034748

PATIENT
  Age: 74 Year
  Sex: Male
  Weight: 83.9 kg

DRUGS (1)
  1. MAGNEVIST [Suspect]
     Dosage: 15 ML, 1 DOSE
     Route: 042
     Dates: start: 20070625, end: 20070625

REACTIONS (1)
  - LIVEDO RETICULARIS [None]
